FAERS Safety Report 23401662 (Version 1)
Quarter: 2024Q1

REPORT INFORMATION
  Report Type: Spontaneous
  Country: US (occurrence: US)
  Receive Date: 20240115
  Receipt Date: 20240115
  Transmission Date: 20240409
  Serious: Yes (Death, Hospitalization, Other)
  Sender: FDA-Public Use
  Company Number: US-ADVANZ PHARMA-202312012302

PATIENT

DRUGS (7)
  1. CLONIDINE [Suspect]
     Active Substance: CLONIDINE
     Dosage: UNK (INGESTION)
     Route: 048
  2. AMLODIPINE [Suspect]
     Active Substance: AMLODIPINE BESYLATE
     Dosage: UNK (INGESTION)
     Route: 048
  3. LISINOPRIL [Suspect]
     Active Substance: LISINOPRIL
     Dosage: UNK (INGESTION)
     Route: 048
  4. DULOXETINE [Suspect]
     Active Substance: DULOXETINE
     Dosage: UNK (INGESTION)
     Route: 048
  5. ARIPIPRAZOLE [Suspect]
     Active Substance: ARIPIPRAZOLE
     Dosage: UNK (INGESTION)
     Route: 048
  6. ALCOHOL [Suspect]
     Active Substance: ALCOHOL
     Dosage: UNK (INGESTION)
     Route: 048
  7. METOPROLOL [Suspect]
     Active Substance: METOPROLOL
     Dosage: UNK (INGESTION)
     Route: 048

REACTIONS (1)
  - Completed suicide [Fatal]
